FAERS Safety Report 6734212-9 (Version None)
Quarter: 2010Q2

REPORT INFORMATION
  Report Type: 
  Country: None (occurrence: None)
  Receive Date: 20100520
  Receipt Date: 20100512
  Transmission Date: 20101027
  Serious: Yes (Other)
  Sender: FDA-Public Use
  Company Number: DE-SHIRE-SPV1-2010-00963

PATIENT
  Sex: Male

DRUGS (1)
  1. MEZAVANT [Suspect]
     Dosage: 2400 MG, UNK

REACTIONS (1)
  - INTRACRANIAL PRESSURE INCREASED [None]
